FAERS Safety Report 19080859 (Version 1)
Quarter: 2021Q2

REPORT INFORMATION
  Report Type: Spontaneous
  Country: US (occurrence: US)
  Receive Date: 20210401
  Receipt Date: 20210401
  Transmission Date: 20210717
  Serious: Yes (Other)
  Sender: FDA-Public Use
  Company Number: US-UNITED THERAPEUTICS-UNT-2021-005304

PATIENT
  Age: 76 Year
  Sex: Female

DRUGS (1)
  1. REMODULIN [Suspect]
     Active Substance: TREPROSTINIL
     Indication: PULMONARY VENO-OCCLUSIVE DISEASE
     Dosage: UNK, CONTINUING
     Route: 041

REACTIONS (4)
  - Pulmonary oedema [Recovering/Resolving]
  - Ventilation perfusion mismatch [Recovering/Resolving]
  - Pulmonary veno-occlusive disease [Unknown]
  - Off label use [Unknown]
